FAERS Safety Report 8415601-3 (Version None)
Quarter: 2012Q2

REPORT INFORMATION
  Report Type: 
  Country: None (occurrence: None)
  Receive Date: 20120530
  Receipt Date: 20120519
  Transmission Date: 20120825
  Serious: Yes (Other)
  Sender: FDA-Public Use
  Company Number: USW201202-000005

PATIENT
  Age: 84 Year
  Sex: Male
  Weight: 63.5036 kg

DRUGS (12)
  1. SINEMET [Suspect]
     Indication: PARKINSON'S DISEASE
     Dosage: 25/100 MG, HALF TABLET, 5 TIMES DAILY, ORAL
     Route: 048
  2. STOOL SOFTNER [Concomitant]
  3. NAMENDA [Suspect]
     Indication: MEMORY IMPAIRMENT
     Dosage: 10 MG TABLET, 2 TIMES DAILY, ORAL
     Route: 048
  4. MIRALAX [Concomitant]
  5. ASPIRIN [Concomitant]
  6. MURINEX [Concomitant]
  7. FLAXSEED OIL [Concomitant]
  8. MULTI-VITAMINS [Concomitant]
  9. SINEMET [Suspect]
     Indication: PARKINSON'S DISEASE
     Dosage: 25/100 MG TABLET, 4 TIMES DAILY, ORAL 50/200 EVERY DAY AT NIGHT
     Route: 048
  10. SUGAR FREE COUGH DROPS [Concomitant]
  11. APOKYN [Suspect]
     Indication: PARKINSON'S DISEASE
     Dosage: 0.2-0.3 ML, 2-4 TIMES DAILY, AS NEEDED, SUBCUTANEOUS
     Route: 058
     Dates: start: 20110714, end: 20120202
  12. MAGNESIUM PHOSPHATE [Concomitant]

REACTIONS (1)
  - PALPITATIONS [None]
